FAERS Safety Report 14272211 (Version 1)
Quarter: 2017Q4

REPORT INFORMATION
  Report Type: Spontaneous
  Country: IL (occurrence: IL)
  Receive Date: 20171212
  Receipt Date: 20171212
  Transmission Date: 20180321
  Serious: Yes (Hospitalization)
  Sender: FDA-Public Use
  Company Number: IL-ACTELION-A-CH2017-163689

PATIENT
  Age: 69 Year
  Sex: Female

DRUGS (9)
  1. OMEPRADEX [Concomitant]
     Active Substance: OMEPRAZOLE
  2. COUMADINE [Concomitant]
     Active Substance: WARFARIN SODIUM
  3. VOLIBRIS [Concomitant]
     Active Substance: AMBRISENTAN
     Dosage: UNK
     Dates: end: 20171125
  4. UPTRAVI [Suspect]
     Active Substance: SELEXIPAG
     Dosage: UNK
     Route: 048
  5. VENTAVIS [Concomitant]
     Active Substance: ILOPROST
     Indication: PULMONARY ARTERIAL HYPERTENSION
  6. TAMBOCOR [Concomitant]
     Active Substance: FLECAINIDE ACETATE
  7. UPTRAVI [Suspect]
     Active Substance: SELEXIPAG
     Indication: PULMONARY ARTERIAL HYPERTENSION
     Dosage: 400 MCG, BID
     Route: 048
     Dates: start: 20171130, end: 20171206
  8. SILDENAFIL. [Concomitant]
     Active Substance: SILDENAFIL
  9. FUSID [Concomitant]
     Active Substance: FUROSEMIDE

REACTIONS (6)
  - Concomitant disease aggravated [Not Recovered/Not Resolved]
  - Treatment noncompliance [Unknown]
  - Oedema peripheral [Recovering/Resolving]
  - Condition aggravated [Unknown]
  - Asthenia [Not Recovered/Not Resolved]
  - Pulmonary arterial hypertension [Unknown]
